FAERS Safety Report 8578612 (Version 3)
Quarter: 2012Q4

REPORT INFORMATION
  Report Type: 
  Country: US (occurrence: US)
  Receive Date: 20120524
  Receipt Date: 20120906
  Transmission Date: 20130627
  Serious: Yes (Hospitalization, Other)
  Sender: FDA-Public Use
  Company Number: US-PFIZER INC-2012122285

PATIENT
  Age: 67 Year
  Sex: Female
  Weight: 107 kg

DRUGS (2)
  1. LYRICA [Suspect]
     Indication: FIBROMYALGIA
     Dosage: 100 mg, 2x/day
     Dates: start: 2009, end: 201205
  2. LYRICA [Suspect]
     Indication: ARTHRALGIA
     Dosage: UNK

REACTIONS (3)
  - Off label use [Unknown]
  - Pericardial effusion [Recovered/Resolved]
  - Pain [Not Recovered/Not Resolved]
